FAERS Safety Report 14409429 (Version 3)
Quarter: 2019Q3

REPORT INFORMATION
  Report Type: Report from Study
  Country: US (occurrence: US)
  Receive Date: 20180119
  Receipt Date: 20190906
  Transmission Date: 20191004
  Serious: Yes (Life-Threatening, Hospitalization)
  Sender: FDA-Public Use
  Company Number: US-ROCHE-2036374

PATIENT
  Age: 52 Year
  Sex: Female
  Weight: 85.5 kg

DRUGS (9)
  1. PERTUZUMAB. [Suspect]
     Active Substance: PERTUZUMAB
     Indication: BREAST CANCER
     Route: 042
     Dates: start: 20170330, end: 20170822
  2. CYCLOPHOSPHAMIDE. [Suspect]
     Active Substance: CYCLOPHOSPHAMIDE
     Indication: BREAST CANCER
     Dosage: DATE OF LAST DOSE: 14/NOV/2017
     Route: 042
     Dates: start: 20170926
  3. PERTUZUMAB. [Suspect]
     Active Substance: PERTUZUMAB
     Dosage: POST OPERATIVE LOADING DOSE?MOST RECENT DOSE: 26/DEC/2017.
     Route: 042
     Dates: start: 20171205
  4. LOMOTIL [Concomitant]
     Active Substance: ATROPINE SULFATE\DIPHENOXYLATE HYDROCHLORIDE
     Route: 065
  5. TRASTUZUMAB. [Suspect]
     Active Substance: TRASTUZUMAB
     Indication: BREAST CANCER
     Route: 042
     Dates: start: 20170330, end: 20170822
  6. TRASTUZUMAB. [Suspect]
     Active Substance: TRASTUZUMAB
     Dosage: POST OPERATIVE LOADING DOSE?MOST RECENT DOSE: 26/DEC/2017.
     Route: 042
     Dates: start: 20171205
  7. DOXORUBICIN [Suspect]
     Active Substance: DOXORUBICIN
     Indication: BREAST CANCER
     Dosage: DATE OF LAST DOSE: 14/NOV/2017
     Route: 042
     Dates: start: 20170926
  8. ZOLOFT [Concomitant]
     Active Substance: SERTRALINE HYDROCHLORIDE
     Route: 065
  9. PROCHLORPERAZINE. [Concomitant]
     Active Substance: PROCHLORPERAZINE
     Route: 065

REACTIONS (2)
  - Febrile neutropenia [Recovered/Resolved]
  - Pleuritic pain [Recovered/Resolved]

NARRATIVE: CASE EVENT DATE: 20171119
